FAERS Safety Report 21930464 (Version 14)
Quarter: 2025Q3

REPORT INFORMATION
  Report Type: Report from Study
  Country: CA (occurrence: CA)
  Receive Date: 20230131
  Receipt Date: 20250904
  Transmission Date: 20251020
  Serious: Yes (Hospitalization, Other)
  Sender: TAKEDA
  Company Number: CA-TAKEDA-CA202031480

PATIENT
  Age: 13 Year
  Sex: Male
  Weight: 55 kg

DRUGS (13)
  1. IDURSULFASE [Suspect]
     Active Substance: IDURSULFASE
     Indication: Mucopolysaccharidosis II
     Dosage: 23.6 MILLIGRAM, 1/WEEK
     Dates: start: 20091201
  2. IDURSULFASE [Suspect]
     Active Substance: IDURSULFASE
     Dosage: 23.5 MILLIGRAM, 1/WEEK
  3. IDURSULFASE [Suspect]
     Active Substance: IDURSULFASE
     Dosage: 29 MILLIGRAM, 1/WEEK
  4. IDURSULFASE [Suspect]
     Active Substance: IDURSULFASE
     Dosage: 5 DOSAGE FORM, 1/WEEK
  5. IDURSULFASE [Suspect]
     Active Substance: IDURSULFASE
     Dosage: UNK UNK, 1/WEEK
  6. IDURSULFASE [Suspect]
     Active Substance: IDURSULFASE
     Dosage: 31 GRAM, 1/WEEK
  7. IDURSULFASE [Suspect]
     Active Substance: IDURSULFASE
     Dosage: UNK UNK, 1/WEEK
  8. IDURSULFASE [Suspect]
     Active Substance: IDURSULFASE
     Dosage: 31 MILLIGRAM, 1/WEEK
  9. IDURSULFASE [Suspect]
     Active Substance: IDURSULFASE
     Dosage: UNK UNK, 1/WEEK
  10. IDURSULFASE [Suspect]
     Active Substance: IDURSULFASE
     Dosage: 31 MILLIGRAM, 1/WEEK
  11. IDURSULFASE [Suspect]
     Active Substance: IDURSULFASE
     Dosage: 27 MILLIGRAM, 1/WEEK
  12. ASPIRIN [Concomitant]
     Active Substance: ASPIRIN
  13. WARFARIN [Concomitant]
     Active Substance: WARFARIN

REACTIONS (16)
  - Blood culture positive [Unknown]
  - Osteomyelitis [Recovered/Resolved]
  - Pyrexia [Unknown]
  - Blood pressure increased [Unknown]
  - Respiratory rate increased [Unknown]
  - Weight increased [Unknown]
  - Haemorrhage [Recovering/Resolving]
  - Poor venous access [Unknown]
  - Inappropriate schedule of product administration [Recovered/Resolved]
  - Product use issue [Unknown]
  - Device use issue [Recovered/Resolved]
  - Weight decreased [Unknown]
  - Device issue [Unknown]
  - Blood pressure fluctuation [Unknown]
  - Infusion site swelling [Recovered/Resolved]
  - Upper respiratory tract infection [Recovering/Resolving]

NARRATIVE: CASE EVENT DATE: 20220717
